FAERS Safety Report 8603948-7 (Version None)
Quarter: 2012Q3

REPORT INFORMATION
  Report Type: 
  Country: None (occurrence: None)
  Receive Date: 20120820
  Receipt Date: 20120808
  Transmission Date: 20120928
  Serious: Yes (Hospitalization)
  Sender: FDA-Public Use
  Company Number: US-BIOGENIDEC-2012BI028728

PATIENT
  Sex: Male

DRUGS (3)
  1. SEIZURE MEDICATION (NOS) [Concomitant]
  2. TYSABRI [Suspect]
     Indication: MULTIPLE SCLEROSIS
     Route: 042
     Dates: start: 20120312
  3. DIABETES MEDICATION (NOS) [Concomitant]

REACTIONS (3)
  - HEAT EXHAUSTION [None]
  - HYPOAESTHESIA [None]
  - GAIT DISTURBANCE [None]
